FAERS Safety Report 8310552-7 (Version None)
Quarter: 2012Q2

REPORT INFORMATION
  Report Type: 
  Country: None (occurrence: None)
  Receive Date: 20120425
  Receipt Date: 20120423
  Transmission Date: 20120825
  Serious: Yes (Hospitalization)
  Sender: FDA-Public Use
  Company Number: US-ROCHE-1057708

PATIENT
  Age: 76 Year
  Sex: Female
  Weight: 61.6 kg

DRUGS (4)
  1. BLINDED MEGF0444A (ANTI-EGFL7) [Suspect]
     Indication: NON-SMALL CELL LUNG CANCER
     Dosage: LAST DOE PRIOR TO SAE 12 MAR 2012
     Route: 042
     Dates: start: 20120312
  2. AVASTIN [Suspect]
     Indication: NON-SMALL CELL LUNG CANCER
     Dosage: LAST DOE PRIOR TO SAE 12 MAR 2012
     Route: 042
     Dates: start: 20120312
  3. PACLITAXEL [Suspect]
     Indication: NON-SMALL CELL LUNG CANCER
     Dosage: LAST DOE PRIOR TO SAE 12 MAR 2012
     Route: 042
     Dates: start: 20120312
  4. CARBOPLATIN [Suspect]
     Indication: NON-SMALL CELL LUNG CANCER
     Dosage: LAST DOE PRIOR TO SAE 12 MAR 2012
     Route: 042
     Dates: start: 20120312

REACTIONS (1)
  - ATRIAL FIBRILLATION [None]
